FAERS Safety Report 10176890 (Version 1)
Quarter: 2014Q2

REPORT INFORMATION
  Report Type: Spontaneous
  Country: CH (occurrence: CH)
  Receive Date: 20140516
  Receipt Date: 20140516
  Transmission Date: 20141212
  Serious: Yes (Hospitalization)
  Sender: FDA-Public Use
  Company Number: CH-NOVOPROD-409804

PATIENT
  Age: 72 Year
  Sex: Female

DRUGS (10)
  1. NOVORAPID [Suspect]
     Indication: PRODUCT USED FOR UNKNOWN INDICATION
     Dosage: VARIED DOSES AS PER BLOOD GLUCOSE
     Route: 058
     Dates: end: 20140401
  2. NOVOMIX 30 [Suspect]
     Indication: PRODUCT USED FOR UNKNOWN INDICATION
     Dosage: AT LUNCH: UP TO 10 MMOL/L- 20IU; MORE THAN 10.1 MMOL/L- 28IU
     Route: 058
     Dates: end: 20140401
  3. TRESIBA [Suspect]
     Indication: PRODUCT USED FOR UNKNOWN INDICATION
     Dosage: 16 IU, QD (IN THE EVENING)
     Route: 058
     Dates: end: 20140401
  4. ASPIRIN CARDIO [Concomitant]
     Dosage: UNK
     Route: 065
  5. DILATREND [Concomitant]
     Dosage: UNK
     Route: 065
  6. TRIATEC                            /00885601/ [Concomitant]
     Dosage: UNK
     Route: 065
  7. CALCIMAGON D3 [Concomitant]
     Dosage: UNK
     Route: 065
  8. EUTHYROX [Concomitant]
     Route: 065
  9. PRAVALOTIN [Concomitant]
     Dosage: UNK
     Route: 065
  10. TOREM                              /01036501/ [Concomitant]
     Dosage: UNK
     Route: 065

REACTIONS (3)
  - Hypothermia [Recovered/Resolved]
  - Altered state of consciousness [Recovered/Resolved]
  - Hypoglycaemia [Recovered/Resolved]
